FAERS Safety Report 10366871 (Version 2)
Quarter: 2015Q1

REPORT INFORMATION
  Report Type: Report from Study
  Country: US (occurrence: US)
  Receive Date: 20140807
  Receipt Date: 20150312
  Transmission Date: 20150720
  Serious: Yes (Other)
  Sender: FDA-Public Use
  Company Number: US-ROCHE-1444622

PATIENT
  Age: 40 Year
  Sex: Female
  Weight: 104.42 kg

DRUGS (7)
  1. NUTROPIN AQ [Suspect]
     Active Substance: SOMATROPIN
     Indication: GROWTH HORMONE DEFICIENCY
     Route: 058
  2. GLUMETZA [Concomitant]
     Active Substance: METFORMIN HYDROCHLORIDE
     Route: 065
  3. KLOR-CON [Concomitant]
     Active Substance: POTASSIUM CHLORIDE
     Route: 065
  4. PILOCARPINE [Concomitant]
     Active Substance: PILOCARPINE
     Route: 065
  5. ACIPHEX [Concomitant]
     Active Substance: RABEPRAZOLE SODIUM
     Route: 065
  6. NUTROPIN AQ [Suspect]
     Active Substance: SOMATROPIN
     Route: 058
  7. PLAQUENIL [Concomitant]
     Active Substance: HYDROXYCHLOROQUINE SULFATE

REACTIONS (30)
  - Insulin-like growth factor decreased [Unknown]
  - Pain in extremity [Unknown]
  - Salt craving [Unknown]
  - Menorrhagia [Unknown]
  - Memory impairment [Unknown]
  - Anxiety [Unknown]
  - Disturbance in attention [Unknown]
  - Feeling abnormal [Unknown]
  - Gallbladder disorder [Unknown]
  - Flank pain [Unknown]
  - Headache [Unknown]
  - Arthralgia [Unknown]
  - Fatigue [Unknown]
  - Diarrhoea [Unknown]
  - Insomnia [Unknown]
  - Depression [Unknown]
  - Vitamin D decreased [Unknown]
  - Anger [Unknown]
  - Joint swelling [Unknown]
  - Insulin resistance syndrome [Unknown]
  - Drug dose omission [Unknown]
  - Iron deficiency anaemia [Unknown]
  - Flushing [Unknown]
  - Mood swings [Unknown]
  - Crying [Unknown]
  - Dysphonia [Unknown]
  - Abdominal distension [Unknown]
  - Weight increased [Unknown]
  - Temperature intolerance [Unknown]
  - Feeling hot [Unknown]

NARRATIVE: CASE EVENT DATE: 20130712
